FAERS Safety Report 18458141 (Version 2)
Quarter: 2020Q4

REPORT INFORMATION
  Report Type: Spontaneous
  Country: IL (occurrence: IL)
  Receive Date: 20201103
  Receipt Date: 20201201
  Transmission Date: 20210114
  Serious: Yes (Other)
  Sender: FDA-Public Use
  Company Number: IL-UCBSA-2020042612

PATIENT
  Age: 30 Year
  Sex: Female

DRUGS (2)
  1. DUAC [Concomitant]
     Active Substance: BENZOYL PEROXIDE\CLINDAMYCIN PHOSPHATE
     Indication: RASH PUSTULAR
  2. CIMZIA [Suspect]
     Active Substance: CERTOLIZUMAB PEGOL
     Indication: CROHN^S DISEASE
     Dosage: 400 MILLIGRAM, EV 4 WEEKS
     Dates: start: 20190820, end: 202008

REACTIONS (5)
  - Depression [Recovering/Resolving]
  - Maternal exposure during pregnancy [Unknown]
  - Seborrhoeic dermatitis [Unknown]
  - Product use issue [Unknown]
  - Rash pustular [Recovered/Resolved with Sequelae]

NARRATIVE: CASE EVENT DATE: 20190820
